FAERS Safety Report 11882348 (Version 1)
Quarter: 2015Q4

REPORT INFORMATION
  Report Type: Spontaneous
  Country: US (occurrence: None)
  Receive Date: 20151230
  Receipt Date: 20151230
  Transmission Date: 20160305
  Serious: Yes (Other)
  Sender: FDA-Public Use
  Company Number: None

PATIENT

DRUGS (1)
  1. SUBOXONE [Suspect]
     Active Substance: BUPRENORPHINE HYDROCHLORIDE\NALOXONE HYDROCHLORIDE
     Indication: DRUG DEPENDENCE
     Dosage: 2 FILMS, ONCE DAILY, TAKEN UNDER THE TONGUE

REACTIONS (5)
  - Application site reaction [None]
  - Application site rash [None]
  - Pain [None]
  - Product solubility abnormal [None]
  - Stomatitis [None]

NARRATIVE: CASE EVENT DATE: 20151229
